FAERS Safety Report 15227300 (Version 1)
Quarter: 2018Q3

REPORT INFORMATION
  Report Type: Spontaneous
  Country: IN (occurrence: IN)
  Receive Date: 20180801
  Receipt Date: 20180801
  Transmission Date: 20181010
  Serious: Yes (Hospitalization)
  Sender: FDA-Public Use
  Company Number: IN-EISAI MEDICAL RESEARCH-EC-2018-043096

PATIENT
  Age: 60 Year
  Sex: Female

DRUGS (10)
  1. CLOBAZAM [Concomitant]
     Active Substance: CLOBAZAM
     Indication: SEIZURE
     Route: 065
  2. RISPERIDONE. [Interacting]
     Active Substance: RISPERIDONE
     Indication: PRODUCT USED FOR UNKNOWN INDICATION
     Dosage: UNKNOWN
     Route: 065
     Dates: start: 2002, end: 2002
  3. RISPERIDONE. [Interacting]
     Active Substance: RISPERIDONE
     Dosage: UNKNOWN
     Route: 065
  4. CITICOLINE [Interacting]
     Active Substance: CITICOLINE
     Indication: MEMORY IMPAIRMENT
     Route: 065
  5. OXCARBAZEPINE. [Concomitant]
     Active Substance: OXCARBAZEPINE
     Indication: SEIZURE
     Route: 065
  6. RISPERIDONE. [Interacting]
     Active Substance: RISPERIDONE
     Dosage: UNKNOWN
     Route: 065
     Dates: start: 2003, end: 2014
  7. DONEPEZIL. [Suspect]
     Active Substance: DONEPEZIL
     Indication: MEMORY IMPAIRMENT
     Route: 048
  8. RISPERIDONE. [Interacting]
     Active Substance: RISPERIDONE
     Route: 065
  9. PIRACETAM [Interacting]
     Active Substance: PIRACETAM
     Indication: MEMORY IMPAIRMENT
     Route: 065
  10. OLMESARTAN [Concomitant]
     Active Substance: OLMESARTAN
     Indication: PRODUCT USED FOR UNKNOWN INDICATION
     Route: 065

REACTIONS (2)
  - Drug interaction [Recovering/Resolving]
  - Neuroleptic malignant syndrome [Recovering/Resolving]

NARRATIVE: CASE EVENT DATE: 2016
